FAERS Safety Report 6267933-5 (Version None)
Quarter: 2009Q3

REPORT INFORMATION
  Report Type: 
  Country: None (occurrence: None)
  Receive Date: 20090713
  Receipt Date: 20090706
  Transmission Date: 20100115
  Serious: Yes (Other)
  Sender: FDA-Public Use
  Company Number: GXBR2009US01510

PATIENT
  Age: 38 Year
  Sex: Female
  Weight: 63.5 kg

DRUGS (3)
  1. PHENTERMINE HYDROCHLORIDE [Suspect]
     Indication: WEIGHT LOSS DIET
     Dosage: AS REQUIRED, ORAL
     Route: 048
  2. PLAN B [Suspect]
     Indication: POST COITAL CONTRACEPTION
     Dosage: 0.75 MG, QD2SDO, ORAL; 0.75 MG, ORAL
     Route: 048
     Dates: start: 20090314, end: 20090315
  3. PLAN B [Suspect]
     Indication: POST COITAL CONTRACEPTION
     Dosage: 0.75 MG, QD2SDO, ORAL; 0.75 MG, ORAL
     Route: 048
     Dates: start: 20090629

REACTIONS (6)
  - BREAST TENDERNESS [None]
  - DRUG EXPOSURE DURING PREGNANCY [None]
  - ECTOPIC PREGNANCY [None]
  - POLLAKIURIA [None]
  - PREGNANCY ON ORAL CONTRACEPTIVE [None]
  - VAGINAL HAEMORRHAGE [None]
